FAERS Safety Report 15455872 (Version 1)
Quarter: 2018Q4

REPORT INFORMATION
  Report Type: Spontaneous
  Country: GB (occurrence: GB)
  Receive Date: 20181002
  Receipt Date: 20181002
  Transmission Date: 20190204
  Serious: Yes (Other)
  Sender: FDA-Public Use
  Company Number: GB-PERRIGOEU-18GB009659

PATIENT

DRUGS (2)
  1. IBUPROFEN. [Suspect]
     Active Substance: IBUPROFEN
     Indication: TOOTHACHE
  2. IBUPROFEN. [Suspect]
     Active Substance: IBUPROFEN
     Indication: TOOTHACHE
     Dosage: 1 DF, UNK
     Route: 048
     Dates: start: 20180915, end: 20180915

REACTIONS (16)
  - Malaise [Recovering/Resolving]
  - Decreased appetite [Recovering/Resolving]
  - Cardiac disorder [Recovering/Resolving]
  - Chest discomfort [Recovering/Resolving]
  - Bedridden [Recovering/Resolving]
  - Abdominal pain [Recovering/Resolving]
  - Nervousness [Recovering/Resolving]
  - Dyspnoea [Recovering/Resolving]
  - Abdominal pain [Recovering/Resolving]
  - Drug hypersensitivity [Recovering/Resolving]
  - Vomiting [Recovering/Resolving]
  - Hyperhidrosis [Recovering/Resolving]
  - Chest pain [Recovering/Resolving]
  - Abdominal pain upper [Recovering/Resolving]
  - Decreased appetite [Recovering/Resolving]
  - Oligodipsia [Recovering/Resolving]

NARRATIVE: CASE EVENT DATE: 20180915
